FAERS Safety Report 13277461 (Version 1)
Quarter: 2017Q1

REPORT INFORMATION
  Report Type: Spontaneous
  Country: CH (occurrence: CH)
  Receive Date: 20170228
  Receipt Date: 20170228
  Transmission Date: 20170428
  Serious: Yes (Hospitalization, Congenital Anomaly)
  Sender: FDA-Public Use
  Company Number: CH-TEVA-741646ISR

PATIENT
  Age: 0 Year
  Sex: Male
  Weight: 2.95 kg

DRUGS (5)
  1. ASPIRIN CARDIO 100 FILMTABLETTEN [Concomitant]
     Active Substance: ASPIRIN
     Indication: SINUS TACHYCARDIA
     Route: 064
     Dates: end: 201608
  2. VENTOLIN [Concomitant]
     Active Substance: ALBUTEROL SULFATE
     Indication: ASTHMA
     Route: 064
  3. ELEVIT [Concomitant]
     Active Substance: FOLIC ACID\IRON\MINERALS\VITAMINS
     Indication: VITAMIN SUPPLEMENTATION
     Route: 064
     Dates: end: 201609
  4. FLAMON -120 RETARD OPTICAPS [Suspect]
     Active Substance: VERAPAMIL HYDROCHLORIDE
     Indication: SINUS TACHYCARDIA
     Route: 064
  5. PULMICORT TURBUHALER [Concomitant]
     Active Substance: BUDESONIDE
     Indication: ASTHMA
     Route: 064
     Dates: end: 201604

REACTIONS (3)
  - Anal fistula [Not Recovered/Not Resolved]
  - Gastrointestinal malformation [Not Recovered/Not Resolved]
  - Exposure during pregnancy [Recovered/Resolved]

NARRATIVE: CASE EVENT DATE: 20151223
